FAERS Safety Report 4855765-1 (Version None)
Quarter: 2005Q4

REPORT INFORMATION
  Report Type: 
  Country: None (occurrence: None)
  Receive Date: 20051216
  Receipt Date: 20050916
  Transmission Date: 20060501
  Serious: Yes (Hospitalization)
  Sender: FDA-Public Use
  Company Number: US-MERCK-0509USA02742

PATIENT
  Age: 45 Year
  Sex: Male
  Weight: 109 kg

DRUGS (1)
  1. VIOXX [Suspect]
     Route: 048
     Dates: start: 20040301, end: 20040901

REACTIONS (6)
  - ACUTE MYOCARDIAL INFARCTION [None]
  - BACK PAIN [None]
  - BLOOD PRESSURE INCREASED [None]
  - CALCULUS URETERIC [None]
  - CORONARY ARTERY DISEASE [None]
  - EMBOLISM [None]
